FAERS Safety Report 10006438 (Version 1)
Quarter: 2014Q1

REPORT INFORMATION
  Report Type: Spontaneous
  Country: US (occurrence: JP)
  Receive Date: 20140313
  Receipt Date: 20140313
  Transmission Date: 20141002
  Serious: Yes (Death)
  Sender: FDA-Public Use
  Company Number: 2014SP001333

PATIENT
  Age: 65 Year
  Sex: Female

DRUGS (8)
  1. CISPLATIN [Suspect]
     Indication: CERVIX CARCINOMA
     Route: 065
  2. PACLITAXEL [Suspect]
     Indication: CERVIX CARCINOMA
     Route: 065
  3. CARBOPLATIN [Suspect]
     Indication: CERVIX CARCINOMA
     Route: 065
  4. DOCETAXEL [Suspect]
     Indication: CERVIX CARCINOMA
     Route: 065
  5. IFOSFAMIDE [Suspect]
     Indication: CERVIX CARCINOMA
     Route: 065
  6. ETOPOSIDE [Suspect]
     Indication: CERVIX CARCINOMA
     Route: 065
  7. NEDAPLATIN [Suspect]
     Indication: CERVIX CARCINOMA
     Route: 065
  8. FLUOROURACIL [Concomitant]
     Route: 065

REACTIONS (3)
  - Myelodysplastic syndrome [Fatal]
  - Second primary malignancy [Fatal]
  - Acute myeloid leukaemia [Fatal]
